FAERS Safety Report 18334176 (Version 1)
Quarter: 2020Q4

REPORT INFORMATION
  Report Type: Spontaneous
  Country: MX (occurrence: MX)
  Receive Date: 20201001
  Receipt Date: 20201001
  Transmission Date: 20210113
  Serious: Yes (Death, Hospitalization)
  Sender: FDA-Public Use
  Company Number: MX-BAYER-2020-211857

PATIENT
  Age: 17 Year
  Sex: Female

DRUGS (1)
  1. LAROTRECTINIB [Suspect]
     Active Substance: LAROTRECTINIB
     Indication: GLIOBLASTOMA
     Dosage: 100 MG, BID
     Route: 048
     Dates: start: 20200319

REACTIONS (1)
  - Glioblastoma [Fatal]
